FAERS Safety Report 5425592-5 (Version None)
Quarter: 2007Q3

REPORT INFORMATION
  Report Type: 
  Country: None (occurrence: None)
  Receive Date: 20070824
  Receipt Date: 20070817
  Transmission Date: 20080115
  Serious: Yes (Life-Threatening)
  Sender: FDA-Public Use
  Company Number: AU-GENENTECH-245695

PATIENT
  Sex: Male
  Weight: 77.7 kg

DRUGS (7)
  1. RITUXAN [Suspect]
     Indication: MANTLE CELL LYMPHOMA
     Dosage: 375 MG/M2, UNK
     Dates: start: 20061101
  2. CYCLOPHOSPHAMIDE [Suspect]
     Indication: MANTLE CELL LYMPHOMA
     Dosage: UNK, UNK
     Dates: start: 20061101
  3. DOXORUBICIN HCL [Suspect]
     Indication: MANTLE CELL LYMPHOMA
     Dosage: UNK, UNK
     Dates: start: 20061101
  4. VINCRISTINE [Suspect]
     Indication: MANTLE CELL LYMPHOMA
     Dosage: UNK, UNK
     Dates: start: 20061101
  5. PREDNISONE TAB [Suspect]
     Indication: MANTLE CELL LYMPHOMA
     Dosage: UNK, UNK
     Dates: start: 20061101
  6. DEXAMETHASONE 0.5MG TAB [Suspect]
     Indication: DRUG USE FOR UNKNOWN INDICATION
     Dates: start: 20070401
  7. CHEMOTHERAPY NOS [Suspect]
     Indication: DRUG USE FOR UNKNOWN INDICATION
     Dates: start: 20070418

REACTIONS (1)
  - BRAIN ABSCESS [None]
